FAERS Safety Report 17361918 (Version 1)
Quarter: 2020Q1

REPORT INFORMATION
  Report Type: Spontaneous
  Country: US (occurrence: US)
  Receive Date: 20200131
  Receipt Date: 20200131
  Transmission Date: 20200409
  Serious: Yes (Other)
  Sender: FDA-Public Use
  Company Number: None

PATIENT
  Age: 36 Year
  Sex: Male
  Weight: 108 kg

DRUGS (2)
  1. OXYCODONE HCI 10MG [Suspect]
     Active Substance: OXYCODONE HYDROCHLORIDE
     Indication: RADICULOPATHY
     Dosage: ?          QUANTITY:120 TABLET(S);?
     Route: 048
  2. OXYCODONE HCI 10MG [Suspect]
     Active Substance: OXYCODONE HYDROCHLORIDE
     Indication: OSTEOARTHRITIS
     Dosage: ?          QUANTITY:120 TABLET(S);?
     Route: 048

REACTIONS (5)
  - Diarrhoea [None]
  - Gastrointestinal disorder [None]
  - Dyschezia [None]
  - Drug withdrawal syndrome [None]
  - Vomiting [None]

NARRATIVE: CASE EVENT DATE: 20200130
